FAERS Safety Report 22088476 (Version 1)
Quarter: 2023Q1

REPORT INFORMATION
  Report Type: Spontaneous
  Country: GB (occurrence: GB)
  Receive Date: 20230313
  Receipt Date: 20230313
  Transmission Date: 20230418
  Serious: Yes (Hospitalization)
  Sender: FDA-Public Use
  Company Number: None

PATIENT
  Sex: Male

DRUGS (8)
  1. ATORVASTATIN [Suspect]
     Active Substance: ATORVASTATIN
     Indication: Product used for unknown indication
     Dosage: 80MG TABLETS ONE TO BE TAKEN EACH NIGHT
  2. AMLODIPINE [Concomitant]
     Active Substance: AMLODIPINE BESYLATE
     Dosage: 5MG TABLETS TAKE ONE DAILY
  3. APIXABAN [Concomitant]
     Active Substance: APIXABAN
     Dosage: 2.5MG TABLETS ONE TO BE TAKEN TWICE A DAY
  4. LINAGLIPTIN [Concomitant]
     Active Substance: LINAGLIPTIN
     Dosage: 5MG TABLETS ONE TO BE TAKEN EACH DAY
  5. METFORMIN [Concomitant]
     Active Substance: METFORMIN HYDROCHLORIDE
     Dosage: 500MG MODIFIED-RELEASE TABLETS 2 TABLETS WITH EVENING MEAL
  6. OMEPRAZOLE [Concomitant]
     Active Substance: OMEPRAZOLE
     Dosage: 20MG GASTRO-RESISTANT CAPSULES 2 ONCE DAILY
  7. PERINDOPRIL [Concomitant]
     Active Substance: PERINDOPRIL
     Dosage: 8MG TABLETS ONE TO BE TAKEN EACH MORNING BEFORE FOOD
  8. PREGABALIN [Concomitant]
     Active Substance: PREGABALIN
     Dosage: 25MG CAPSULES ONE TO BE TAKEN TWICE A DAY

REACTIONS (1)
  - Ischaemic hepatitis [Recovered/Resolved]

NARRATIVE: CASE EVENT DATE: 20221011
